FAERS Safety Report 7545874-0 (Version None)
Quarter: 2011Q2

REPORT INFORMATION
  Report Type: 
  Country: None (occurrence: None)
  Receive Date: 20110524
  Receipt Date: 20110222
  Transmission Date: 20111010
  Serious: No
  Sender: FDA-Public Use
  Company Number: 028040

PATIENT
  Sex: Female
  Weight: 49.9 kg

DRUGS (5)
  1. PREVACID [Concomitant]
  2. ACYCLOVIR [Concomitant]
  3. M.V.I. [Concomitant]
  4. CIMZIA [Suspect]
     Indication: CROHN'S DISEASE
     Dosage: (2 SHOTS SUBCUTANEOUS)
     Route: 058
     Dates: start: 20101221, end: 20110118
  5. PROZAC [Concomitant]

REACTIONS (3)
  - ABDOMINAL PAIN [None]
  - ARTHRALGIA [None]
  - PAIN IN EXTREMITY [None]
